FAERS Safety Report 21397345 (Version 2)
Quarter: 2023Q2

REPORT INFORMATION
  Report Type: Report from Study
  Country: AT (occurrence: AT)
  Receive Date: 20220930
  Receipt Date: 20230502
  Transmission Date: 20230722
  Serious: Yes (Hospitalization, Other)
  Sender: FDA-Public Use
  Company Number: AT-ABBVIE-4132091

PATIENT
  Sex: Male

DRUGS (7)
  1. HUMIRA [Suspect]
     Active Substance: ADALIMUMAB
     Indication: Rheumatoid arthritis
     Route: 058
     Dates: start: 2017, end: 202206
  2. HUMIRA [Suspect]
     Active Substance: ADALIMUMAB
     Indication: Axial spondyloarthritis
     Route: 058
     Dates: start: 202206
  3. Wobenzym [Concomitant]
     Indication: Product used for unknown indication
  4. Symbioflor [Concomitant]
     Indication: Immune disorder prophylaxis
  5. TRAMADOL [Concomitant]
     Active Substance: TRAMADOL
     Indication: Pain
     Dosage: 100
  6. VOLTAREN [Concomitant]
     Active Substance: DICLOFENAC SODIUM
     Indication: Product used for unknown indication
     Dosage: 100
  7. PHOENIX SOLIDAGO [Concomitant]
     Indication: Product used for unknown indication

REACTIONS (15)
  - Lymphadenopathy [Recovered/Resolved]
  - Erythema [Recovered/Resolved]
  - Pyrexia [Recovered/Resolved]
  - Headache [Recovered/Resolved]
  - Leukaemia [Unknown]
  - Pruritus [Recovered/Resolved]
  - Lymphadenopathy [Unknown]
  - Hyperhidrosis [Recovered/Resolved]
  - Arthralgia [Not Recovered/Not Resolved]
  - Suspected COVID-19 [Unknown]
  - Infection [Recovered/Resolved]
  - Lymphadenopathy [Recovered/Resolved]
  - Neck pain [Recovered/Resolved]
  - Lymphoma [Unknown]
  - Immunosuppression [Recovered/Resolved]

NARRATIVE: CASE EVENT DATE: 20220101
